FAERS Safety Report 17426135 (Version 2)
Quarter: 2020Q1

REPORT INFORMATION
  Report Type: Spontaneous
  Country: BE (occurrence: BE)
  Receive Date: 20200217
  Receipt Date: 20200304
  Transmission Date: 20200409
  Serious: Yes (Other)
  Sender: FDA-Public Use
  Company Number: BE-ADIENNEP-2020AD000137

PATIENT
  Sex: Female

DRUGS (1)
  1. TEPADINA [Suspect]
     Active Substance: THIOTEPA
     Route: 042

REACTIONS (1)
  - Administration site extravasation [Recovered/Resolved]

NARRATIVE: CASE EVENT DATE: 20200206
